FAERS Safety Report 19289723 (Version 1)
Quarter: 2021Q2

REPORT INFORMATION
  Report Type: Spontaneous
  Country: US (occurrence: US)
  Receive Date: 20210522
  Receipt Date: 20210522
  Transmission Date: 20210717
  Serious: No
  Sender: FDA-Public Use
  Company Number: US-009507513-2105USA002929

PATIENT
  Age: 41 Year
  Sex: Female

DRUGS (14)
  1. TEMODAR [Suspect]
     Active Substance: TEMOZOLOMIDE
     Indication: NEUROBLASTOMA
     Dosage: 100 MG/M2, DAILY 1 H PRIOR TO IRINOTECAN (DAYS 1 ? 5 OF EVERY 21 DAY CYCLE)
     Route: 048
     Dates: start: 20190416, end: 20190420
  2. CISPLATIN. [Concomitant]
     Active Substance: CISPLATIN
     Indication: NEUROBLASTOMA
     Dosage: ONE CYCLE
  3. TEMODAR [Suspect]
     Active Substance: TEMOZOLOMIDE
     Dosage: 100 MG/M2, DAILY 1 H PRIOR TO IRINOTECAN (DAYS 1 ? 5 OF EVERY 21 DAY CYCLE)
     Route: 048
     Dates: start: 20190604, end: 20190608
  4. IRINOTECAN [Concomitant]
     Active Substance: IRINOTECAN
     Dosage: 50 MG/M2, DAILY, OVER 90 MIN (DAYS 1?5 OF EVERY 21 DAYS CYCLE)
     Route: 042
     Dates: start: 20190604, end: 20190608
  5. IRINOTECAN [Concomitant]
     Active Substance: IRINOTECAN
     Dosage: 50 MG/M2, DAILY, OVER 90 MIN (DAYS 1?5 OF EVERY 21 DAYS CYCLE)
     Route: 042
     Dates: start: 20190722, end: 20190726
  6. TEMODAR [Suspect]
     Active Substance: TEMOZOLOMIDE
     Dosage: 100 MG/M2, DAILY 1 H PRIOR TO IRINOTECAN (DAYS 1 ? 5 OF EVERY 21 DAY CYCLE)
     Route: 048
     Dates: start: 20190506, end: 20190510
  7. CYCLOPHOSPHAMIDE. [Concomitant]
     Active Substance: CYCLOPHOSPHAMIDE
     Indication: NEUROBLASTOMA
     Dosage: COMPLETED TWO CYCLES
  8. ETOPOSIDE. [Concomitant]
     Active Substance: ETOPOSIDE
     Indication: NEUROBLASTOMA
     Dosage: ONE CYCLE
  9. IRINOTECAN [Concomitant]
     Active Substance: IRINOTECAN
     Indication: NEUROBLASTOMA
     Dosage: 50 MG/M2, DAILY, OVER 90 MIN (DAYS 1?5 OF EVERY 21 DAYS CYCLE)
     Route: 042
     Dates: start: 20190416, end: 20190420
  10. DINUTUXIMAB [Concomitant]
     Active Substance: DINUTUXIMAB
     Dosage: 17.5 MG/M2, OVER 10?20 H DAILY (DAYS 2 ? 5 OF EVERY 21 DAYS CYCLE)
     Route: 042
     Dates: start: 20190605, end: 20190608
  11. IRINOTECAN [Concomitant]
     Active Substance: IRINOTECAN
     Dosage: 50 MG/M2, DAILY, OVER 90 MIN (DAYS 1?5 OF EVERY 21 DAYS CYCLE)
     Route: 042
     Dates: start: 20190506, end: 20190510
  12. DINUTUXIMAB [Concomitant]
     Active Substance: DINUTUXIMAB
     Indication: NEUROBLASTOMA
     Dosage: 17.5 MG/M2, OVER 10?20 H DAILY (DAYS 2 ? 5 OF EVERY 21 DAYS CYCLE)
     Route: 042
     Dates: start: 20190507, end: 20190510
  13. TOPOTECAN [Concomitant]
     Active Substance: TOPOTECAN HYDROCHLORIDE
     Indication: NEUROBLASTOMA
     Dosage: COMPLETED TWO CYCLES
  14. TEMODAR [Suspect]
     Active Substance: TEMOZOLOMIDE
     Dosage: 100 MG/M2, DAILY 1 H PRIOR TO IRINOTECAN (DAYS 1 ? 5 OF EVERY 21 DAY CYCLE)
     Route: 048
     Dates: start: 20190722, end: 20190726

REACTIONS (2)
  - Product use in unapproved indication [Unknown]
  - Drug effective for unapproved indication [Unknown]

NARRATIVE: CASE EVENT DATE: 20190416
